FAERS Safety Report 4599664-1 (Version None)
Quarter: 2005Q1

REPORT INFORMATION
  Report Type: 
  Country: None (occurrence: None)
  Receive Date: 20050307
  Receipt Date: 20041104
  Transmission Date: 20050727
  Serious: Yes (Hospitalization, Other)
  Sender: FDA-Public Use
  Company Number: PHHO2004JP15641

PATIENT
  Age: 20 Year
  Sex: Female
  Weight: 44 kg

DRUGS (27)
  1. ISODINE [Concomitant]
  2. KN3B [Concomitant]
  3. MUCOSTA [Concomitant]
  4. ISONIAZID [Concomitant]
  5. PYDOXAL [Concomitant]
  6. ACTOS [Concomitant]
  7. BASEN [Concomitant]
  8. ALOSITOL [Concomitant]
  9. NADIFLOXACIN [Concomitant]
  10. LOCHOL [Concomitant]
  11. HUMULIN R [Concomitant]
  12. PREDONINE [Suspect]
     Indication: RENAL TRANSPLANT
     Dosage: 20 MG / DAY
     Route: 048
     Dates: start: 20041021
  13. PREDONINE [Suspect]
     Dosage: 10 MG / DAY
     Route: 048
  14. CELLCEPT [Suspect]
     Indication: RENAL TRANSPLANT
     Dosage: 2000 MG / DAY
     Route: 048
     Dates: start: 20041021, end: 20041129
  15. NEORAL [Suspect]
     Indication: RENAL TRANSPLANT
     Dosage: 130 MG / DAY
     Route: 048
     Dates: start: 20041215, end: 20041217
  16. NEORAL [Suspect]
     Dosage: 110 MG / DAY
     Route: 048
     Dates: start: 20041218, end: 20050111
  17. NEORAL [Suspect]
     Dosage: 110 MG / DAY
     Route: 048
     Dates: start: 20050113
  18. NEORAL [Suspect]
     Dosage: UNK, UNK
     Route: 048
     Dates: start: 20041104, end: 20041104
  19. NEORAL [Suspect]
     Dosage: 400 MG / DAY
     Route: 048
     Dates: start: 20041106, end: 20041107
  20. NEORAL [Suspect]
     Dosage: 200 MG / DAY
     Route: 048
     Dates: start: 20041108, end: 20041108
  21. NEORAL [Suspect]
     Dosage: 550 MG / DAY
     Route: 048
     Dates: start: 20041102, end: 20041103
  22. NEORAL [Suspect]
     Dosage: 400 MG / DAY
     Route: 048
     Dates: start: 20041021, end: 20041025
  23. NEORAL [Suspect]
     Dosage: 500 MG / DAY
     Route: 048
     Dates: start: 20041026, end: 20041101
  24. NEORAL [Suspect]
     Dosage: 200 MG / DAY
     Route: 048
     Dates: start: 20041119, end: 20041130
  25. NEORAL [Suspect]
     Dosage: 130 MG / DAY
     Route: 048
     Dates: start: 20041201, end: 20041202
  26. NEORAL [Suspect]
     Dosage: 130 MG, BID
     Route: 048
     Dates: start: 20041203, end: 20041214
  27. NEORAL [Suspect]
     Dosage: 150 MG/DAY
     Route: 048
     Dates: start: 20041111, end: 20041118

REACTIONS (15)
  - BACTERIAL INFECTION [None]
  - BLOOD CREATININE INCREASED [None]
  - BLOOD IMMUNOGLOBULIN G DECREASED [None]
  - DEHYDRATION [None]
  - DRUG TOXICITY [None]
  - ELECTROLYTE IMBALANCE [None]
  - HAEMODIALYSIS [None]
  - HEPATIC ENZYME INCREASED [None]
  - NEPHROPATHY TOXIC [None]
  - PYELONEPHRITIS ACUTE [None]
  - PYREXIA [None]
  - RENAL IMPAIRMENT [None]
  - SEPSIS [None]
  - URINARY TRACT INFECTION [None]
  - WEIGHT INCREASED [None]
